FAERS Safety Report 4715183-3 (Version None)
Quarter: 2005Q3

REPORT INFORMATION
  Report Type: 
  Country: None (occurrence: None)
  Receive Date: 20050715
  Receipt Date: 20050701
  Transmission Date: 20060218
  Serious: Yes (Other)
  Sender: FDA-Public Use
  Company Number: GBWYE790801JUL05

PATIENT
  Sex: Female
  Weight: 31 kg

DRUGS (4)
  1. ENBREL [Suspect]
     Indication: POLYARTHRITIS
     Route: 058
     Dates: start: 20020311
  2. ENBREL [Suspect]
     Indication: RHEUMATOID FACTOR NEGATIVE
  3. PRED FORTE [Concomitant]
     Route: 031
     Dates: start: 20020412
  4. PIROXICAM [Concomitant]
     Route: 048
     Dates: start: 20031104

REACTIONS (2)
  - INJECTION SITE INFECTION [None]
  - PHARYNGITIS [None]
